FAERS Safety Report 6289698-3 (Version None)
Quarter: 2009Q3

REPORT INFORMATION
  Report Type: 
  Country: None (occurrence: None)
  Receive Date: 20090730
  Receipt Date: 20080619
  Transmission Date: 20100115
  Serious: Yes (Hospitalization)
  Sender: FDA-Public Use
  Company Number: US-BRISTOL-MYERS SQUIBB COMPANY-14234819

PATIENT
  Age: 78 Year
  Sex: Male

DRUGS (4)
  1. COUMADIN [Suspect]
     Dosage: LOW DOSE
  2. ASPIRIN [Suspect]
     Indication: STENT PLACEMENT
     Dosage: 3STENTS
     Route: 065
     Dates: start: 20080425
  3. PLAVIX [Suspect]
     Indication: STENT PLACEMENT
     Dosage: THERAPY DATES: 25APR08-30APR08  30APR08-CONT: DOSE INCREASED TO 75MG BID FROM
     Route: 048
     Dates: start: 20080425
  4. PLAVIX [Suspect]
     Indication: CORONARY ANGIOPLASTY
     Dosage: THERAPY DATES: 25APR08-30APR08  30APR08-CONT: DOSE INCREASED TO 75MG BID FROM
     Route: 048
     Dates: start: 20080425

REACTIONS (1)
  - GASTROINTESTINAL HAEMORRHAGE [None]
